FAERS Safety Report 7130032-4 (Version None)
Quarter: 2010Q4

REPORT INFORMATION
  Report Type: 
  Country: None (occurrence: None)
  Receive Date: 20101201
  Receipt Date: 20101122
  Transmission Date: 20110411
  Serious: No
  Sender: FDA-Public Use
  Company Number: US-BIOGENIDEC-2010BI021522

PATIENT
  Age: 34 Year
  Sex: Female

DRUGS (5)
  1. TYSABRI [Suspect]
     Indication: MULTIPLE SCLEROSIS
     Route: 042
     Dates: start: 20050214, end: 20060214
  2. TYSABRI [Suspect]
     Route: 042
     Dates: start: 20080122, end: 20081223
  3. TYSABRI [Suspect]
     Route: 042
     Dates: start: 20090520, end: 20100826
  4. AVONEX [Concomitant]
     Route: 030
     Dates: start: 20031031, end: 20040126
  5. AVONEX [Concomitant]
     Route: 030

REACTIONS (4)
  - CHEST PAIN [None]
  - DYSPNOEA [None]
  - POOR VENOUS ACCESS [None]
  - VEIN DISORDER [None]
